FAERS Safety Report 22882250 (Version 4)
Quarter: 2023Q4

REPORT INFORMATION
  Report Type: Report from Study
  Country: US (occurrence: US)
  Receive Date: 20230830
  Receipt Date: 20231130
  Transmission Date: 20240109
  Serious: Yes (Hospitalization)
  Sender: FDA-Public Use
  Company Number: US-002147023-NVSC2023US186702

PATIENT
  Sex: Female

DRUGS (3)
  1. KESIMPTA [Suspect]
     Active Substance: OFATUMUMAB
     Indication: Product used for unknown indication
     Dosage: UNK
     Route: 065
     Dates: start: 20230810
  2. KESIMPTA [Suspect]
     Active Substance: OFATUMUMAB
     Dosage: UNK (LOADING DOSE 2)
     Route: 065
  3. KESIMPTA [Suspect]
     Active Substance: OFATUMUMAB
     Dosage: UNK  (LOADING DOSE 3)
     Route: 065

REACTIONS (9)
  - Condition aggravated [Unknown]
  - Joint swelling [Unknown]
  - Gait disturbance [Unknown]
  - Incontinence [Unknown]
  - Pain [Recovered/Resolved]
  - Migraine [Unknown]
  - Chills [Recovered/Resolved]
  - Arthralgia [Unknown]
  - Pain [Unknown]
